FAERS Safety Report 10610005 (Version 1)
Quarter: 2014Q4

REPORT INFORMATION
  Report Type: Spontaneous
  Country: JP (occurrence: None)
  Receive Date: 20141124
  Receipt Date: 20141124
  Transmission Date: 20150529
  Serious: Yes (Other)
  Sender: FDA-Public Use
  Company Number: IMP_08216_2014

PATIENT
  Age: 23 Year
  Sex: Male

DRUGS (1)
  1. FLUDROCORTISONE ACETATE. [Suspect]
     Active Substance: FLUDROCORTISONE ACETATE
     Indication: ORTHOSTATIC HYPOTENSION
     Route: 048

REACTIONS (3)
  - Generalised erythema [None]
  - Hypersensitivity [None]
  - Lymphocyte stimulation test positive [None]
